FAERS Safety Report 11419481 (Version 2)
Quarter: 2015Q3

REPORT INFORMATION
  Report Type: Spontaneous
  Country: KR (occurrence: KR)
  Receive Date: 20150826
  Receipt Date: 20150910
  Transmission Date: 20151125
  Serious: Yes (Other)
  Sender: FDA-Public Use
  Company Number: KR-SUN PHARMACEUTICAL INDUSTRIES LTD-2015RR-102083

PATIENT

DRUGS (18)
  1. ARIPIPRAZOLE. [Concomitant]
     Active Substance: ARIPIPRAZOLE
     Indication: TARDIVE DYSKINESIA
  2. BENZTROPINE [Suspect]
     Active Substance: BENZTROPINE
     Indication: TORTICOLLIS
     Dosage: 1-2 MG/DAY
     Route: 065
  3. LEXAPRO [Suspect]
     Active Substance: ESCITALOPRAM OXALATE
     Indication: MAJOR DEPRESSION
     Dosage: 5 MG, DAILY
     Route: 065
  4. BENZTROPINE [Suspect]
     Active Substance: BENZTROPINE
     Indication: TORTICOLLIS
     Dosage: 2 MG, DAILY
     Route: 065
  5. ATIVAN [Suspect]
     Active Substance: LORAZEPAM
     Indication: MAJOR DEPRESSION
     Dosage: 2 MG, DAILY
     Route: 065
  6. PERKIN [Suspect]
     Active Substance: CARBIDOPA\LEVODOPA
     Indication: TORTICOLLIS
     Dosage: 50/200 MG/DAY
     Route: 065
  7. PROCYCLIDINE [Concomitant]
     Active Substance: PROCYCLIDINE
     Indication: TORTICOLLIS
     Dosage: 5 MG, DAILY
     Route: 065
  8. ARIPIPRAZOLE. [Concomitant]
     Active Substance: ARIPIPRAZOLE
     Indication: DYSTONIA
     Dosage: 0.5 MG, DAILY
     Route: 065
  9. TRITTICO [Suspect]
     Active Substance: TRAZODONE HYDROCHLORIDE
     Indication: MAJOR DEPRESSION
     Dosage: 25 MG, DAILY
     Route: 065
  10. CLONAZEPAM. [Concomitant]
     Active Substance: CLONAZEPAM
     Indication: TORTICOLLIS
     Dosage: 1.5 MG, DAILY
     Route: 065
  11. TRITTICO [Suspect]
     Active Substance: TRAZODONE HYDROCHLORIDE
     Indication: MAJOR DEPRESSION
     Dosage: 25 MG, DAILY
     Route: 065
  12. BENZTROPINE [Suspect]
     Active Substance: BENZTROPINE
     Indication: TORTICOLLIS
     Dosage: 2 MG, DAILY
     Route: 065
  13. TRIHEXIN [Suspect]
     Active Substance: TRIHEXYPHENIDYL HYDROCHLORIDE
     Indication: TORTICOLLIS
     Dosage: 2 MG, DAILY
     Route: 065
  14. BENZTROPINE [Suspect]
     Active Substance: BENZTROPINE
     Dosage: 2 MG, DAILY
     Route: 065
  15. BACLOFEN. [Concomitant]
     Active Substance: BACLOFEN
     Indication: TORTICOLLIS
     Dosage: 20 MG, DAILY
     Route: 065
  16. ETRAVIL [Suspect]
     Active Substance: AMITRIPTYLINE HYDROCHLORIDE
     Indication: MAJOR DEPRESSION
     Dosage: 10 MG, DAILY
     Route: 065
  17. FLURAZEPAM [Concomitant]
     Active Substance: FLURAZEPAM\FLURAZEPAM HYDROCHLORIDE
     Indication: MAJOR DEPRESSION
     Dosage: 15-30 MG/DAY
     Route: 065
  18. CLONAZEPAM. [Concomitant]
     Active Substance: CLONAZEPAM
     Indication: TORTICOLLIS
     Dosage: 1.5 MG, DAILY
     Route: 065

REACTIONS (6)
  - Nausea [Unknown]
  - Anxiety [Unknown]
  - Dry mouth [Unknown]
  - Dystonia [Recovering/Resolving]
  - Tardive dyskinesia [Recovering/Resolving]
  - Vision blurred [Unknown]
